FAERS Safety Report 4407070-5 (Version None)
Quarter: 2004Q3

REPORT INFORMATION
  Report Type: 
  Country: None (occurrence: None)
  Receive Date: 20040723
  Receipt Date: 20040723
  Transmission Date: 20050211
  Serious: Yes (Death)
  Sender: FDA-Public Use
  Company Number: None

PATIENT
  Sex: Male

DRUGS (1)
  1. REGULAR INSULIN [Suspect]

REACTIONS (4)
  - BRADYCARDIA [None]
  - CARDIO-RESPIRATORY ARREST [None]
  - CONVULSION [None]
  - MEDICATION ERROR [None]
